FAERS Safety Report 25774471 (Version 1)
Quarter: 2025Q3

REPORT INFORMATION
  Report Type: Spontaneous
  Country: US (occurrence: US)
  Receive Date: 20250908
  Receipt Date: 20250908
  Transmission Date: 20251020
  Serious: No
  Sender: TEVA
  Company Number: US-TEVA-VS-3368757

PATIENT
  Age: 33 Year
  Sex: Female

DRUGS (4)
  1. ARMODAFINIL [Suspect]
     Active Substance: ARMODAFINIL
     Indication: Product used for unknown indication
     Route: 065
  2. LUMRYZ [Suspect]
     Active Substance: SODIUM OXYBATE
     Indication: Narcolepsy
     Route: 048
     Dates: start: 20250704, end: 2025
  3. LUMRYZ [Suspect]
     Active Substance: SODIUM OXYBATE
     Indication: Narcolepsy
     Route: 048
     Dates: start: 2025, end: 2025
  4. LUMRYZ [Suspect]
     Active Substance: SODIUM OXYBATE
     Indication: Narcolepsy
     Dosage: EXTENDED RELEASE. ONCE NIGHTLY
     Route: 048
     Dates: start: 2025

REACTIONS (5)
  - Bruxism [Not Recovered/Not Resolved]
  - Sleep inertia [Unknown]
  - Nightmare [Recovered/Resolved]
  - Nocturia [Unknown]
  - Headache [Unknown]

NARRATIVE: CASE EVENT DATE: 20250407
